FAERS Safety Report 7546501-9 (Version None)
Quarter: 2011Q2

REPORT INFORMATION
  Report Type: 
  Country: None (occurrence: None)
  Receive Date: 20110524
  Receipt Date: 20110221
  Transmission Date: 20111010
  Serious: No
  Sender: FDA-Public Use
  Company Number: 027946

PATIENT
  Sex: Female

DRUGS (9)
  1. OMEPRAZOLE [Concomitant]
  2. BURGERSTEIN VITAMIN C [Concomitant]
  3. VITAMIN E /05494901/ [Concomitant]
  4. PREDNISONE [Concomitant]
  5. CIMZIA [Suspect]
     Indication: CROHN'S DISEASE
     Dosage: SEE IMAGE
     Route: 058
     Dates: start: 20090201, end: 20100701
  6. CIMZIA [Suspect]
     Indication: CROHN'S DISEASE
     Dosage: SEE IMAGE
     Route: 058
     Dates: start: 20101101
  7. CALCIUM W/MAGNESIUM [Concomitant]
  8. FUROSEMIDE [Concomitant]
  9. VITAMIN B12 /00056201/ [Concomitant]

REACTIONS (1)
  - ALOPECIA [None]
